FAERS Safety Report 8398314-6 (Version None)
Quarter: 2012Q2

REPORT INFORMATION
  Report Type: 
  Country: None (occurrence: None)
  Receive Date: 20120531
  Receipt Date: 20120522
  Transmission Date: 20120825
  Serious: Yes (Other)
  Sender: FDA-Public Use
  Company Number: DE-ASTRAZENECA-2012SE33397

PATIENT
  Sex: Male

DRUGS (3)
  1. MEMANTINE HYDROCHLORIDE [Concomitant]
  2. SEROQUEL [Suspect]
     Route: 048
     Dates: start: 20120101
  3. CITALOPRAM HYDROBROMIDE [Interacting]

REACTIONS (3)
  - INFLAMMATION [None]
  - DRUG INTERACTION [None]
  - FATIGUE [None]
